FAERS Safety Report 9902710 (Version 2)
Quarter: 2014Q1

REPORT INFORMATION
  Report Type: Report from Study
  Country: DO (occurrence: DO)
  Receive Date: 20140217
  Receipt Date: 20140227
  Transmission Date: 20141002
  Serious: Yes (Hospitalization)
  Sender: FDA-Public Use
  Company Number: DO-GILEAD-2014-0093963

PATIENT
  Age: 44 Year
  Sex: Female
  Weight: 68.9 kg

DRUGS (14)
  1. ELVITEGRAVIR/EMTRICITABINE/TENOFOVIR DF/COBICISTAT [Suspect]
     Indication: HIV INFECTION
     Dosage: UNK
     Route: 048
     Dates: start: 20130829
  2. CHLORZOXAZONE [Concomitant]
     Indication: BACK PAIN
     Route: 048
     Dates: start: 20131017, end: 20131017
  3. VITAMIN B [Concomitant]
     Indication: VITAMIN SUPPLEMENTATION
     Route: 048
     Dates: start: 2011
  4. VITAMIN B [Concomitant]
     Route: 048
     Dates: start: 20130925, end: 20131020
  5. PARACETAMOL [Concomitant]
     Indication: BACK PAIN
     Route: 048
     Dates: start: 20131017, end: 20131017
  6. AMBROXOL [Concomitant]
     Indication: NASOPHARYNGITIS
     Route: 048
     Dates: start: 20130925, end: 20130929
  7. NAPROXEN [Concomitant]
     Indication: BACK PAIN
     Route: 048
     Dates: start: 20130929, end: 20130929
  8. IBUPROFEN [Concomitant]
     Indication: BACK PAIN
     Route: 048
     Dates: start: 20131017, end: 20131021
  9. DEXKETOPROFEN TROMETAMOL [Concomitant]
  10. OMEPRAZOL                          /00661201/ [Concomitant]
  11. PROPINOX COMPUESTO [Concomitant]
  12. AZITHROMYCIN [Concomitant]
  13. RANITIDINE [Concomitant]
  14. ASIATIC CENTELLA [Concomitant]

REACTIONS (1)
  - Cholelithiasis [Recovered/Resolved]
